FAERS Safety Report 8066926-5 (Version None)
Quarter: 2012Q1

REPORT INFORMATION
  Report Type: 
  Country: None (occurrence: None)
  Receive Date: 20120124
  Receipt Date: 20120113
  Transmission Date: 20120608
  Serious: Yes (Hospitalization)
  Sender: FDA-Public Use
  Company Number: US-GLAXOSMITHKLINE-A0962438A

PATIENT
  Age: 58 Year
  Sex: Female
  Weight: 84.1 kg

DRUGS (6)
  1. OFATUMUMAB [Suspect]
     Indication: NON-HODGKIN'S LYMPHOMA
     Route: 042
     Dates: start: 20111208
  2. WELLBUTRIN [Concomitant]
     Dosage: 150MG PER DAY
  3. LENALIDOMIDE [Suspect]
     Indication: NON-HODGKIN'S LYMPHOMA
     Dosage: 10MG PER DAY
     Route: 048
     Dates: start: 20111208, end: 20111211
  4. NUVIGIL [Concomitant]
     Dosage: 60MG PER DAY
  5. LASIX [Concomitant]
     Dosage: 40MG PER DAY
  6. CYMBALTA [Concomitant]
     Dosage: 60MG PER DAY

REACTIONS (3)
  - PYREXIA [None]
  - ASTHENIA [None]
  - PAIN [None]
